FAERS Safety Report 4805754-8 (Version None)
Quarter: 2005Q4

REPORT INFORMATION
  Report Type: 
  Country: None (occurrence: None)
  Receive Date: 20051021
  Receipt Date: 20051011
  Transmission Date: 20060501
  Serious: Yes (Hospitalization)
  Sender: FDA-Public Use
  Company Number: FR-ROCHE-420619

PATIENT
  Age: 76 Year
  Sex: Female

DRUGS (6)
  1. ROCEPHIN [Suspect]
     Indication: PYELONEPHRITIS
     Dosage: REPORTED AS INJECTABLE SOLUTION.
     Route: 042
  2. LANZOR [Concomitant]
     Route: 048
  3. CORTANCYL [Concomitant]
     Route: 048
  4. ACTONEL [Concomitant]
     Route: 048
  5. PROZAC [Concomitant]
     Route: 048
  6. OFLOCET [Concomitant]
     Indication: PYELONEPHRITIS
     Route: 042

REACTIONS (1)
  - HEPATITIS TOXIC [None]
